FAERS Safety Report 21971453 (Version 2)
Quarter: 2023Q1

REPORT INFORMATION
  Report Type: Report from Study
  Country: IT (occurrence: IT)
  Receive Date: 20230209
  Receipt Date: 20230309
  Transmission Date: 20230418
  Serious: Yes (Other)
  Sender: FDA-Public Use
  Company Number: IT-INSMED, INC.-2023-00390-IT

PATIENT
  Age: 54 Year
  Sex: Male

DRUGS (1)
  1. ARIKAYCE [Suspect]
     Active Substance: AMIKACIN
     Indication: Mycobacterium avium complex infection
     Dosage: UNK, QD
     Route: 055
     Dates: start: 20230120, end: 20230220

REACTIONS (4)
  - Respiratory disorder [Recovered/Resolved]
  - Chest pain [Recovering/Resolving]
  - Oral discomfort [Recovering/Resolving]
  - Dyspnoea [Recovering/Resolving]

NARRATIVE: CASE EVENT DATE: 20230127
